FAERS Safety Report 24218710 (Version 1)
Quarter: 2024Q3

REPORT INFORMATION
  Report Type: Spontaneous
  Country: EG (occurrence: EG)
  Receive Date: 20240816
  Receipt Date: 20240816
  Transmission Date: 20241017
  Serious: Yes (Hospitalization, Other)
  Sender: JOHNSON AND JOHNSON
  Company Number: EG-JNJFOC-20240831050

PATIENT
  Age: 57 Year
  Sex: Male

DRUGS (6)
  1. SIMPONI [Suspect]
     Active Substance: GOLIMUMAB
     Indication: Colitis ulcerative
     Dosage: 2 AMPULES/MONTH, 4 AMPULES/MONTH
     Route: 058
  2. SIMPONI [Suspect]
     Active Substance: GOLIMUMAB
     Dosage: 2 AMPULES/15 DAYS
     Route: 058
  3. PENTASA [Concomitant]
     Active Substance: MESALAMINE
  4. IMURAN [Concomitant]
     Active Substance: AZATHIOPRINE
  5. TORSEMIDE [Concomitant]
     Active Substance: TORSEMIDE
  6. PREDNISOLONE [Concomitant]
     Active Substance: PREDNISOLONE

REACTIONS (7)
  - COVID-19 [Recovered/Resolved]
  - Colitis ulcerative [Recovered/Resolved]
  - Carditis [Recovered/Resolved]
  - Cardiac arrest [Recovered/Resolved]
  - Neutropenia [Recovered/Resolved]
  - Off label use [Unknown]
  - Drug ineffective [Unknown]
